FAERS Safety Report 7431995-X (Version None)
Quarter: 2011Q2

REPORT INFORMATION
  Report Type: 
  Country: None (occurrence: None)
  Receive Date: 20110422
  Receipt Date: 20110419
  Transmission Date: 20111010
  Serious: Yes (Other)
  Sender: FDA-Public Use
  Company Number: JP-B.I. PHARMACEUTICALS,INC./RIDGEFIELD-2011-BP-11258NB

PATIENT
  Age: 58 Year
  Sex: Male

DRUGS (2)
  1. SPIRIVA [Suspect]
     Dosage: 18 MCG
     Route: 055
     Dates: start: 20091201
  2. TAMSULOSIN HCL [Concomitant]
     Route: 048

REACTIONS (2)
  - BLADDER CANCER [None]
  - POLLAKIURIA [None]
